FAERS Safety Report 13470555 (Version 1)
Quarter: 2017Q2

REPORT INFORMATION
  Report Type: Spontaneous
  Country: BE (occurrence: BE)
  Receive Date: 20170424
  Receipt Date: 20170424
  Transmission Date: 20170830
  Serious: Yes (Life-Threatening, Other)
  Sender: FDA-Public Use
  Company Number: BE-STRIDES ARCOLAB LIMITED-2017SP006658

PATIENT

DRUGS (1)
  1. FERROUS GLUCONATE [Suspect]
     Active Substance: FERROUS GLUCONATE
     Indication: IRON DEFICIENCY
     Dosage: ONE WEEK INTERVAL: TOTAL DOSE 1000 MG
     Route: 042

REACTIONS (3)
  - Hypophosphataemia [Recovered/Resolved]
  - Fatigue [Recovered/Resolved]
  - Renal tubular dysfunction [Recovered/Resolved]
